FAERS Safety Report 6171828-5 (Version None)
Quarter: 2009Q2

REPORT INFORMATION
  Report Type: 
  Country: None (occurrence: None)
  Receive Date: 20090428
  Receipt Date: 20090428
  Transmission Date: 20091009
  Serious: Yes (Hospitalization)
  Sender: FDA-Public Use
  Company Number: None

PATIENT
  Age: 58 Year
  Sex: Female
  Weight: 53.5244 kg

DRUGS (1)
  1. FORTEO [Suspect]
     Indication: OSTEOPOROSIS
     Dosage: 1 SUBQ INJ Q PM CUTANEOUS
     Route: 003
     Dates: start: 20090106, end: 20090123

REACTIONS (6)
  - BLOOD CALCIUM ABNORMAL [None]
  - BLOOD URINE PRESENT [None]
  - MUSCLE SPASMS [None]
  - NERVOUS SYSTEM DISORDER [None]
  - PALLOR [None]
  - URINARY TRACT INFECTION [None]
